FAERS Safety Report 18273307 (Version 1)
Quarter: 2020Q3

REPORT INFORMATION
  Report Type: Spontaneous
  Country: US (occurrence: US)
  Receive Date: 20200916
  Receipt Date: 20200916
  Transmission Date: 20201103
  Serious: No
  Sender: FDA-Public Use
  Company Number: US-THERAPEUTICSMD-2020TMD02701

PATIENT
  Sex: Female

DRUGS (8)
  1. IMVEXXY [Suspect]
     Active Substance: ESTRADIOL
     Dosage: 10 ?G, 2X/WEEK
     Route: 067
     Dates: start: 202003
  2. UNSPECIFIED SUPPLEMENTS [Concomitant]
     Dosage: UNK
     Dates: end: 2020
  3. UNSPECIFIED SUPPLEMENTS [Concomitant]
     Dosage: UNK, CHANGED TO ^CHEWY^ ONES
     Dates: start: 2020
  4. METHOTREXATE. [Concomitant]
     Active Substance: METHOTREXATE
  5. HYDROXYCHLOROQUINE [Concomitant]
     Active Substance: HYDROXYCHLOROQUINE
  6. PEPCID [Concomitant]
     Active Substance: FAMOTIDINE
  7. UNSPECIFIED VITAMINS [Concomitant]
     Active Substance: VITAMINS
     Dosage: UNK
     Dates: end: 2020
  8. UNSPECIFIED VITAMINS [Concomitant]
     Active Substance: VITAMINS
     Dosage: UNK, CHANGED TO ^CHEWY^ ONES
     Dates: start: 2020

REACTIONS (7)
  - Dysphonia [Not Recovered/Not Resolved]
  - Off label use [Unknown]
  - Oropharyngeal pain [Not Recovered/Not Resolved]
  - Dysphagia [Not Recovered/Not Resolved]
  - Hypersensitivity [Unknown]
  - Gastrooesophageal reflux disease [Unknown]
  - Oral pain [Not Recovered/Not Resolved]

NARRATIVE: CASE EVENT DATE: 2020
